FAERS Safety Report 24090783 (Version 3)
Quarter: 2024Q3

REPORT INFORMATION
  Report Type: Report from Study
  Country: US (occurrence: US)
  Receive Date: 20240715
  Receipt Date: 20240729
  Transmission Date: 20241016
  Serious: Yes (Hospitalization, Disabling)
  Sender: TAKEDA
  Company Number: US-TAKEDA-2024TUS070282

PATIENT
  Sex: Male

DRUGS (1)
  1. HUMAN IMMUNOGLOBULIN G [Suspect]
     Active Substance: HUMAN IMMUNOGLOBULIN G
     Indication: Product used for unknown indication
     Dosage: UNK
     Route: 065

REACTIONS (1)
  - Movement disorder [Unknown]
